FAERS Safety Report 5651526-4 (Version None)
Quarter: 2008Q1

REPORT INFORMATION
  Report Type: 
  Country: None (occurrence: None)
  Receive Date: 20080305
  Receipt Date: 20080225
  Transmission Date: 20080703
  Serious: Yes (Death)
  Sender: FDA-Public Use
  Company Number: SE-ELI_LILLY_AND_COMPANY-SE200802005493

PATIENT
  Sex: Female
  Weight: 72 kg

DRUGS (12)
  1. HUMALOG [Suspect]
     Indication: DIABETES MELLITUS
     Dosage: 2 U, EACH MORNING
     Dates: start: 20080208
  2. HUMALOG [Suspect]
     Dosage: 2 U, NOON
     Dates: start: 20080208
  3. HUMALOG [Suspect]
     Dosage: 2 U, EACH EVENING
     Dates: start: 20080208
  4. METFORMIN HCL [Concomitant]
     Indication: DEPRESSION
     Dosage: 500 MG, UNKNOWN
  5. PLAVIX [Concomitant]
     Indication: MYOCARDIAL ISCHAEMIA
     Dosage: 75 MG, UNKNOWN
  6. LASIX [Concomitant]
     Indication: HYPERTENSION
     Dosage: 60 MG, UNKNOWN
  7. METOPROLOL TARTRATE [Concomitant]
     Indication: HYPERTENSION
     Dosage: 50 MG, UNKNOWN
  8. FELODIPINE [Concomitant]
     Indication: HYPERTENSION
     Dosage: 10 MG, UNKNOWN
  9. ATACAND [Concomitant]
     Indication: HYPERTENSION
     Dosage: 30 MG, UNKNOWN
  10. SIMVASTATIN [Concomitant]
     Indication: HYPERLIPIDAEMIA
     Dosage: 20 MG, UNKNOWN
  11. PREDNISOLONE [Concomitant]
     Indication: POLYMYALGIA RHEUMATICA
     Dosage: 5 MG, UNKNOWN
  12. CITALOPRAM HYDROBROMIDE [Concomitant]
     Indication: DEPRESSION
     Dosage: 20 MG, UNKNOWN

REACTIONS (1)
  - SUDDEN DEATH [None]
